FAERS Safety Report 20023726 (Version 9)
Quarter: 2025Q2

REPORT INFORMATION
  Report Type: Report from Study
  Country: US (occurrence: US)
  Receive Date: 20211102
  Receipt Date: 20250424
  Transmission Date: 20250716
  Serious: Yes (Life-Threatening, Hospitalization, Other)
  Sender: MYLAN
  Company Number: US-MYLANLABS-2021M1070609

PATIENT
  Age: 27 Year
  Sex: Male
  Weight: 77.11 kg

DRUGS (30)
  1. CLOZAPINE [Interacting]
     Active Substance: CLOZAPINE
     Indication: Product used for unknown indication
  2. CLOZAPINE [Interacting]
     Active Substance: CLOZAPINE
     Dosage: 350 MILLIGRAM, QW
     Dates: end: 20220126
  3. CLOZAPINE [Interacting]
     Active Substance: CLOZAPINE
  4. CLOZAPINE [Interacting]
     Active Substance: CLOZAPINE
     Dosage: 100 MILLIGRAM, TID(TAKEN 3 TIMES A DAY)
  5. DEPAKOTE [Concomitant]
     Active Substance: DIVALPROEX SODIUM
  6. ATIVAN [Concomitant]
     Active Substance: LORAZEPAM
     Indication: Heart rate increased
  7. ATIVAN [Concomitant]
     Active Substance: LORAZEPAM
     Indication: Nausea
  8. ATIVAN [Concomitant]
     Active Substance: LORAZEPAM
     Indication: Constipation
  9. ATIVAN [Concomitant]
     Active Substance: LORAZEPAM
     Indication: Ulcer
  10. DIVALPROEX SODIUM [Concomitant]
     Active Substance: DIVALPROEX SODIUM
     Dosage: 500 MILLIGRAM, TID(500MG 3 TIMES A DAY)
  11. ATENOLOL [Concomitant]
     Active Substance: ATENOLOL
  12. AMANTADINE [Concomitant]
     Active Substance: AMANTADINE
     Indication: Seizure
     Dosage: 100 MILLIGRAM, BID(100MG TWICE A DAY )
  13. GLYCOPYRROLATE [Concomitant]
     Active Substance: GLYCOPYRROLATE
     Indication: Nausea
     Dosage: 1 MILLIGRAM, BID(1MG TWICE A DAY)
  14. GLYCOPYRROLATE [Concomitant]
     Active Substance: GLYCOPYRROLATE
     Indication: Constipation
  15. GLYCOPYRROLATE [Concomitant]
     Active Substance: GLYCOPYRROLATE
     Indication: Ulcer
  16. DOCUSATE SODIUM [Concomitant]
     Active Substance: DOCUSATE SODIUM
     Indication: Nausea
     Dosage: 100 MILLIGRAM, BID(100 MG TWICE A DAY)
  17. DOCUSATE SODIUM [Concomitant]
     Active Substance: DOCUSATE SODIUM
     Indication: Constipation
  18. DOCUSATE SODIUM [Concomitant]
     Active Substance: DOCUSATE SODIUM
     Indication: Ulcer
  19. LACTULOSE [Concomitant]
     Active Substance: LACTULOSE
     Indication: Nausea
  20. LACTULOSE [Concomitant]
     Active Substance: LACTULOSE
     Indication: Constipation
  21. LACTULOSE [Concomitant]
     Active Substance: LACTULOSE
     Indication: Ulcer
  22. SENNA [Concomitant]
     Active Substance: SENNOSIDES
     Indication: Nausea
     Dosage: 17.2 MILLIGRAM, QD(17.2MG ONCE PER DAY)
  23. SENNA [Concomitant]
     Active Substance: SENNOSIDES
     Indication: Constipation
  24. SENNA [Concomitant]
     Active Substance: SENNOSIDES
     Indication: Ulcer
  25. PANTOPRAZOLE [Concomitant]
     Active Substance: PANTOPRAZOLE
     Indication: Nausea
     Dosage: 40 MILLIGRAM, QD(40 MG ONCE PER DAY)
  26. PANTOPRAZOLE [Concomitant]
     Active Substance: PANTOPRAZOLE
     Indication: Constipation
  27. PANTOPRAZOLE [Concomitant]
     Active Substance: PANTOPRAZOLE
     Indication: Ulcer
  28. DIPHENHYDRAMINE [Concomitant]
     Active Substance: DIPHENHYDRAMINE
     Indication: Nausea
  29. DIPHENHYDRAMINE [Concomitant]
     Active Substance: DIPHENHYDRAMINE
     Indication: Constipation
  30. DIPHENHYDRAMINE [Concomitant]
     Active Substance: DIPHENHYDRAMINE
     Indication: Ulcer

REACTIONS (27)
  - Neuroleptic malignant syndrome [Unknown]
  - Eye injury [Unknown]
  - Loss of consciousness [Unknown]
  - Psychotic disorder [Unknown]
  - Long QT syndrome [Unknown]
  - Heart rate irregular [Unknown]
  - Seizure [Unknown]
  - Vomiting [Unknown]
  - Renal failure [Unknown]
  - Cardiac failure [Unknown]
  - Cardiac arrest [Unknown]
  - Hypertension [Unknown]
  - Tachycardia [Unknown]
  - Rhabdomyolysis [Unknown]
  - Acute respiratory failure [Unknown]
  - Coma [Unknown]
  - Pneumonia aspiration [Unknown]
  - Gastrointestinal disorder [Unknown]
  - Rash [Unknown]
  - Leukocytosis [Unknown]
  - Antipsychotic drug level increased [Unknown]
  - Cardiac disorder [Unknown]
  - Condition aggravated [Unknown]
  - Drug interaction [Unknown]
  - Constipation [Unknown]
  - Palpitations [Unknown]
  - Dysphagia [Unknown]

NARRATIVE: CASE EVENT DATE: 20200501
